FAERS Safety Report 21788899 (Version 1)
Quarter: 2022Q4

REPORT INFORMATION
  Report Type: Report from Study
  Country: US (occurrence: US)
  Receive Date: 20221228
  Receipt Date: 20221228
  Transmission Date: 20230113
  Serious: No
  Sender: FDA-Public Use
  Company Number: US-ABBVIE-4215403

PATIENT
  Age: 55 Year
  Sex: Female

DRUGS (1)
  1. HUMIRA [Suspect]
     Active Substance: ADALIMUMAB
     Indication: Crohn^s disease
     Dosage: CITRATE FREE
     Route: 058
     Dates: start: 20221115

REACTIONS (6)
  - Nasopharyngitis [Not Recovered/Not Resolved]
  - Oral discomfort [Unknown]
  - Asthenia [Unknown]
  - Dizziness [Unknown]
  - Throat clearing [Unknown]
  - Fatigue [Unknown]

NARRATIVE: CASE EVENT DATE: 20221123
